FAERS Safety Report 11820456 (Version 1)
Quarter: 2015Q4

REPORT INFORMATION
  Report Type: Spontaneous
  Country: US (occurrence: US)
  Receive Date: 20151210
  Receipt Date: 20151210
  Transmission Date: 20160305
  Serious: Yes (Other)
  Sender: FDA-Public Use
  Company Number: US-SA-2015SA204303

PATIENT
  Age: 56 Year
  Sex: Female

DRUGS (1)
  1. ALLEGRA [Suspect]
     Active Substance: FEXOFENADINE HYDROCHLORIDE
     Indication: MULTIPLE ALLERGIES
     Dosage: TAKEN FROM-ABOUT 2 MONTHS AGO
     Route: 065

REACTIONS (5)
  - Diabetes mellitus [Unknown]
  - Blood glucose increased [Unknown]
  - Blood pressure abnormal [Unknown]
  - Product use issue [Unknown]
  - Visual impairment [Unknown]
